FAERS Safety Report 7023859-0 (Version None)
Quarter: 2010Q3

REPORT INFORMATION
  Report Type: 
  Country: None (occurrence: None)
  Receive Date: 20100916
  Receipt Date: 20100601
  Transmission Date: 20110219
  Serious: No
  Sender: FDA-Public Use
  Company Number: DKLU1062760(0)

PATIENT
  Age: 24 Year
  Sex: Male

DRUGS (4)
  1. SABRIL [Suspect]
  2. DEPAKOTE SPRINKLES (VALPROATE SEMISODIUM) (125 MG) [Concomitant]
  3. BANZEL (RUFINAMIDE) (400 MG, TABLET) [Concomitant]
  4. CELONTIN (MESUXIMIDE) (300 MG) [Concomitant]

REACTIONS (1)
  - DEVICE OCCLUSION [None]
